FAERS Safety Report 6306749-8 (Version None)
Quarter: 2009Q3

REPORT INFORMATION
  Report Type: 
  Country: None (occurrence: None)
  Receive Date: 20090811
  Receipt Date: 20090811
  Transmission Date: 20100115
  Serious: Yes (Death)
  Sender: FDA-Public Use
  Company Number: None

PATIENT
  Sex: Female

DRUGS (1)
  1. CLOZARIL [Suspect]
     Indication: SCHIZOPHRENIA
     Dosage: 650MG EVERY DAY PO
     Route: 048
     Dates: start: 19990225, end: 20090225

REACTIONS (3)
  - ASTHENIA [None]
  - HYPOPARATHYROIDISM [None]
  - URINARY TRACT INFECTION [None]
